FAERS Safety Report 20172551 (Version 1)
Quarter: 2021Q4

REPORT INFORMATION
  Report Type: Other
  Country: IT (occurrence: IT)
  Receive Date: 20211210
  Receipt Date: 20211210
  Transmission Date: 20220303
  Serious: Yes (Other)
  Sender: FDA-Public Use
  Company Number: IT-CELLTRION HEALTHCARE HUNGARY KFT-2021IT015560

PATIENT

DRUGS (1)
  1. RITUXIMAB [Suspect]
     Active Substance: RITUXIMAB
     Indication: Multiple sclerosis
     Route: 041
     Dates: start: 201803, end: 201901

REACTIONS (6)
  - Multiple sclerosis [Unknown]
  - Urinary retention [Unknown]
  - Gait disturbance [Unknown]
  - Hypoaesthesia [Unknown]
  - Off label use [Unknown]
  - Rebound effect [Unknown]
